FAERS Safety Report 17004914 (Version 1)
Quarter: 2019Q4

REPORT INFORMATION
  Report Type: Report from Study
  Country: DE (occurrence: DE)
  Receive Date: 20191107
  Receipt Date: 20191107
  Transmission Date: 20200122
  Serious: Yes (Other)
  Sender: FDA-Public Use
  Company Number: DE-UCBSA-2019045915

PATIENT
  Age: 29 Year
  Sex: Female

DRUGS (1)
  1. CERTOLIZUMAB PEGOL PSO [Suspect]
     Active Substance: CERTOLIZUMAB PEGOL
     Indication: PSORIASIS

REACTIONS (5)
  - Adverse drug reaction [Unknown]
  - Maternal exposure during breast feeding [Unknown]
  - Psoriasis [Unknown]
  - Perinatal depression [Unknown]
  - Maternal exposure during pregnancy [Unknown]
